FAERS Safety Report 6610325-7 (Version None)
Quarter: 2010Q1

REPORT INFORMATION
  Report Type: 
  Country: None (occurrence: None)
  Receive Date: 20100302
  Receipt Date: 20100223
  Transmission Date: 20100710
  Serious: Yes (Death, Other)
  Sender: FDA-Public Use
  Company Number: PHHO2009US16001

PATIENT
  Sex: Female
  Weight: 100.68 kg

DRUGS (11)
  1. ZOMETA [Suspect]
  2. AFINITOR [Suspect]
     Indication: BREAST CANCER METASTATIC
     Dosage: 10 MG, QD
     Route: 048
     Dates: start: 20091007
  3. BLINDED NO TREATMENT RECEIVED NOMED [Suspect]
     Indication: BREAST CANCER METASTATIC
     Dosage: 10 MG, QD
     Route: 048
     Dates: start: 20091007
  4. BLINDED PLACEBO COMP-PLA+ [Suspect]
     Indication: BREAST CANCER METASTATIC
     Dosage: 10 MG, QD
     Route: 048
     Dates: start: 20091007
  5. BEVACIZUMAB [Suspect]
     Indication: BREAST CANCER METASTATIC
     Dosage: 10MG/KG
     Route: 042
     Dates: start: 20091007
  6. PACLITAXEL [Suspect]
     Indication: BREAST CANCER METASTATIC
     Dosage: 90MG/M2
     Route: 042
     Dates: start: 20091007
  7. OXYCODONE HCL [Concomitant]
  8. TRAMADOL HCL [Concomitant]
  9. GLIMEPIRIDE [Concomitant]
  10. EMLA [Concomitant]
  11. PROCHLORPERAZINE MALEATE [Concomitant]

REACTIONS (3)
  - DEHYDRATION [None]
  - DIARRHOEA [None]
  - INFLUENZA LIKE ILLNESS [None]
